FAERS Safety Report 13445016 (Version 2)
Quarter: 2018Q1

REPORT INFORMATION
  Report Type: Spontaneous
  Country: US (occurrence: US)
  Receive Date: 20170414
  Receipt Date: 20180212
  Transmission Date: 20180508
  Serious: Yes (Hospitalization, Other)
  Sender: FDA-Public Use
  Company Number: US-SA-2017SA063614

PATIENT
  Sex: Male

DRUGS (15)
  1. PANTHENOL/RETINOL/THIAMINE HYDROCHLORIDE/ASCORBIC ACID/ERGOCALCIFEROL/FOLIC ACID/RIBOFLAVIN/NICOTINA [Concomitant]
     Route: 065
  2. HYDROCODONE [Concomitant]
     Active Substance: HYDROCODONE
     Route: 065
  3. FUROSEMIDE. [Concomitant]
     Active Substance: FUROSEMIDE
     Route: 065
  4. POTASSIUM [Concomitant]
     Active Substance: POTASSIUM
     Route: 065
  5. FOLIC ACID. [Concomitant]
     Active Substance: FOLIC ACID
     Route: 065
  6. PROTONIX [Concomitant]
     Active Substance: PANTOPRAZOLE SODIUM
     Route: 065
  7. ONDANSETRON [Concomitant]
     Active Substance: ONDANSETRON
     Route: 065
  8. LASIX [Concomitant]
     Active Substance: FUROSEMIDE
     Route: 065
  9. SYNTHROID [Concomitant]
     Active Substance: LEVOTHYROXINE SODIUM
     Route: 065
  10. CETIRIZINE [Concomitant]
     Active Substance: CETIRIZINE HYDROCHLORIDE
     Route: 065
  11. FLUOXETINE [Concomitant]
     Active Substance: FLUOXETINE HYDROCHLORIDE
     Route: 065
  12. DICYCLOMINE [Concomitant]
     Active Substance: DICYCLOMINE HYDROCHLORIDE
     Route: 065
  13. PLAVIX [Suspect]
     Active Substance: CLOPIDOGREL BISULFATE
     Route: 048
  14. FLUOXETINE HYDROCHLORIDE. [Concomitant]
     Active Substance: FLUOXETINE HYDROCHLORIDE
     Route: 065
  15. IRON [Concomitant]
     Active Substance: IRON
     Route: 065

REACTIONS (40)
  - Brain natriuretic peptide increased [Unknown]
  - Nasopharyngitis [Recovered/Resolved]
  - Nephrolithiasis [Recovering/Resolving]
  - Sinusitis [Recovering/Resolving]
  - Paraesthesia [Unknown]
  - Weight decreased [Recovering/Resolving]
  - Diarrhoea [Recovering/Resolving]
  - Skin disorder [Recovered/Resolved]
  - Staphylococcal sepsis [Recovered/Resolved]
  - Clostridial sepsis [Recovering/Resolving]
  - Malnutrition [Recovering/Resolving]
  - Cardiac failure congestive [Not Recovered/Not Resolved]
  - Body temperature decreased [Recovering/Resolving]
  - Haematoma [Recovering/Resolving]
  - Peritoneal haematoma [Recovering/Resolving]
  - Blood pressure increased [Recovering/Resolving]
  - Nasal congestion [Recovered/Resolved]
  - Decubitus ulcer [Recovered/Resolved]
  - Haemorrhage [Recovering/Resolving]
  - Oedema peripheral [Recovered/Resolved]
  - Thrombosis [Recovered/Resolved]
  - Atelectasis [Recovered/Resolved]
  - Sepsis [Recovering/Resolving]
  - Haemoglobin decreased [Recovering/Resolving]
  - Dysgeusia [Recovering/Resolving]
  - Dysphagia [Recovering/Resolving]
  - Urine output decreased [Recovering/Resolving]
  - Constipation [Recovering/Resolving]
  - Productive cough [Recovered/Resolved]
  - Pleural effusion [Recovered/Resolved]
  - Hepatic infection [Recovering/Resolving]
  - Intestinal obstruction [Recovered/Resolved]
  - Dyspnoea [Recovered/Resolved]
  - Subcutaneous abscess [Recovering/Resolving]
  - Skin ulcer [Recovering/Resolving]
  - Urinary tract infection [Recovered/Resolved]
  - Upper respiratory tract infection [Recovered/Resolved]
  - Protein total decreased [Recovering/Resolving]
  - Pulmonary oedema [Recovering/Resolving]
  - Abdominal pain upper [Recovering/Resolving]
